FAERS Safety Report 8364929-4 (Version None)
Quarter: 2012Q2

REPORT INFORMATION
  Report Type: 
  Country: None (occurrence: None)
  Receive Date: 20120516
  Receipt Date: 20120508
  Transmission Date: 20120825
  Serious: Yes (Other)
  Sender: FDA-Public Use
  Company Number: JP-VERTEX PHARMACEUTICALS INC.-AE-2012-004790

PATIENT
  Age: 59 Year
  Sex: Female

DRUGS (14)
  1. GLYCYRON [Concomitant]
     Route: 048
  2. ACETAMINOPHEN [Concomitant]
     Route: 048
     Dates: start: 20120301
  3. PROCHLORPERAZINE [Concomitant]
     Route: 048
     Dates: start: 20120322
  4. RIBAVIRIN [Concomitant]
     Route: 048
     Dates: start: 20120329
  5. URSO 250 [Concomitant]
     Route: 048
  6. RABEPRAZOLE SODIUM [Concomitant]
     Route: 048
     Dates: start: 20120301
  7. MOTILIUM [Concomitant]
     Route: 048
     Dates: start: 20120217, end: 20120301
  8. RIBAVIRIN [Concomitant]
     Indication: HEPATITIS C
     Route: 048
     Dates: start: 20120213, end: 20120322
  9. FAMOTIDINE [Concomitant]
     Route: 048
     Dates: start: 20120216, end: 20120223
  10. RIBAVIRIN [Concomitant]
     Route: 048
     Dates: start: 20120323, end: 20120329
  11. DIOVAN [Concomitant]
     Route: 048
  12. TELAVIC (TELAPREVIR) [Suspect]
     Indication: HEPATITIS C
     Route: 048
     Dates: start: 20120213
  13. PEGINTERFERON ALFA-2B [Concomitant]
     Indication: HEPATITIS C
     Route: 051
     Dates: start: 20120213
  14. LANSOPRAZOLE [Concomitant]
     Route: 048
     Dates: start: 20120223, end: 20120301

REACTIONS (1)
  - SKIN EXFOLIATION [None]
